FAERS Safety Report 7110968-0 (Version None)
Quarter: 2010Q4

REPORT INFORMATION
  Report Type: 
  Country: None (occurrence: None)
  Receive Date: 20101112
  Receipt Date: 20101102
  Transmission Date: 20110411
  Serious: No
  Sender: FDA-Public Use
  Company Number: 019200

PATIENT
  Age: 38 Year
  Sex: Male
  Weight: 101 kg

DRUGS (5)
  1. KEPPRA [Suspect]
     Indication: CONVULSION
     Dosage: SEE IMAGE
     Route: 048
     Dates: start: 20090101, end: 20100919
  2. KEPPRA [Suspect]
     Indication: CONVULSION
     Dosage: SEE IMAGE
     Route: 048
     Dates: start: 20100920
  3. KEPPRA [Suspect]
     Indication: CONVULSION
     Dosage: SEE IMAGE
     Route: 048
     Dates: start: 20100921
  4. KEPPRA [Suspect]
  5. LACOSAMIDE [Suspect]
     Indication: CONVULSION
     Dosage: (150 MG BID ORAL)
     Route: 048
     Dates: start: 20100101

REACTIONS (1)
  - CONVULSION [None]
